FAERS Safety Report 4271513-0 (Version None)
Quarter: 2004Q1

REPORT INFORMATION
  Report Type: 
  Country: None (occurrence: None)
  Receive Date: 20040113
  Receipt Date: 20031223
  Transmission Date: 20041129
  Serious: Yes (Other)
  Sender: FDA-Public Use
  Company Number: US_031299589

PATIENT
  Age: 37 Year
  Sex: Female
  Weight: 51 kg

DRUGS (13)
  1. EVISTA [Suspect]
     Indication: OSTEOPOROSIS
     Dosage: 60 MG/1 DAY
     Dates: start: 20030401
  2. BROMAZEPAM [Concomitant]
  3. CEPHALEXIN [Concomitant]
  4. CYCLOBENZAPRINE HCL [Concomitant]
  5. DICLOFENAC SODIUM [Concomitant]
  6. PHENOBARBITAL TAB [Concomitant]
  7. GINSENG [Concomitant]
  8. GLUCOMANNAN [Concomitant]
  9. NEOZINE (LEVOMEPROMAZINE) [Concomitant]
  10. QUITOZANA [Concomitant]
  11. RANITIDINE [Concomitant]
  12. SERTRALINE HCL [Concomitant]
  13. VITAMIN E [Concomitant]

REACTIONS (4)
  - BLINDNESS UNILATERAL [None]
  - BONE PAIN [None]
  - GAMMA-GLUTAMYLTRANSFERASE INCREASED [None]
  - HAEMOGLOBIN DECREASED [None]
